FAERS Safety Report 25043933 (Version 3)
Quarter: 2025Q1

REPORT INFORMATION
  Report Type: Spontaneous
  Country: DE (occurrence: DE)
  Receive Date: 20250306
  Receipt Date: 20250319
  Transmission Date: 20250409
  Serious: Yes (Hospitalization)
  Sender: BOEHRINGER INGELHEIM
  Company Number: DE-BoehringerIngelheim-2025-BI-013286

PATIENT
  Age: 32 Year
  Sex: Female

DRUGS (4)
  1. TELMISARTAN [Suspect]
     Active Substance: TELMISARTAN
     Indication: Product used for unknown indication
  2. EYLEA [Suspect]
     Active Substance: AFLIBERCEPT
     Indication: Diabetic retinal oedema
  3. EYLEA [Suspect]
     Active Substance: AFLIBERCEPT
     Dates: start: 20250127, end: 20250127
  4. FIASP [Concomitant]
     Active Substance: INSULIN ASPART
     Indication: Diabetes mellitus

REACTIONS (5)
  - Blindness [Not Recovered/Not Resolved]
  - Xanthopsia [Unknown]
  - Visual field defect [Unknown]
  - Visual impairment [Not Recovered/Not Resolved]
  - Eye disorder [Unknown]

NARRATIVE: CASE EVENT DATE: 20250127
